FAERS Safety Report 6827364-3 (Version None)
Quarter: 2010Q3

REPORT INFORMATION
  Report Type: 
  Country: None (occurrence: None)
  Receive Date: 20100709
  Receipt Date: 20070110
  Transmission Date: 20110219
  Serious: Yes (Other)
  Sender: FDA-Public Use
  Company Number: US-PFIZER INC-2007003431

PATIENT
  Sex: Female
  Weight: 104.3 kg

DRUGS (1)
  1. CHANTIX [Suspect]
     Indication: SMOKING CESSATION THERAPY
     Dates: start: 20070106, end: 20070110

REACTIONS (8)
  - ABDOMINAL DISCOMFORT [None]
  - CONSTIPATION [None]
  - DIPLOPIA [None]
  - DYSPEPSIA [None]
  - RASH GENERALISED [None]
  - SLEEP DISORDER [None]
  - VISION BLURRED [None]
  - VOMITING [None]
